FAERS Safety Report 19323545 (Version 1)
Quarter: 2021Q2

REPORT INFORMATION
  Report Type: Spontaneous
  Country: US (occurrence: US)
  Receive Date: 20210528
  Receipt Date: 20210528
  Transmission Date: 20210717
  Serious: Yes (Other)
  Sender: FDA-Public Use
  Company Number: US-SUN PHARMACEUTICAL INDUSTRIES LTD-2021R1-298347

PATIENT
  Sex: Female
  Weight: 66.21 kg

DRUGS (1)
  1. EPOPROSTENOL. [Suspect]
     Active Substance: EPOPROSTENOL
     Indication: PULMONARY ARTERIAL HYPERTENSION
     Dosage: 30 NG/KG/MIN, CONTINUOUS
     Route: 042
     Dates: start: 20210323

REACTIONS (2)
  - Epistaxis [Unknown]
  - Pain in jaw [Unknown]
